FAERS Safety Report 21592152 (Version 1)
Quarter: 2022Q4

REPORT INFORMATION
  Report Type: Spontaneous
  Country: US (occurrence: US)
  Receive Date: 20221114
  Receipt Date: 20221114
  Transmission Date: 20230112
  Serious: Yes (Other)
  Sender: FDA-Public Use
  Company Number: US-BRISTOL-MYERS SQUIBB COMPANY-2022-134418

PATIENT
  Age: 78 Year
  Sex: Female

DRUGS (1)
  1. REVLIMID [Suspect]
     Active Substance: LENALIDOMIDE
     Indication: Plasma cell myeloma
     Dosage: 1 CAPSULE EVERY OTHER DAY X 3 WEEKS AND 1 WEEK OFF
     Route: 048
     Dates: start: 202108, end: 202210

REACTIONS (2)
  - Plasma cell myeloma [Unknown]
  - Off label use [Unknown]

NARRATIVE: CASE EVENT DATE: 20220101
